FAERS Safety Report 7246070-7 (Version None)
Quarter: 2011Q1

REPORT INFORMATION
  Report Type: 
  Country: None (occurrence: None)
  Receive Date: 20110126
  Receipt Date: 20110121
  Transmission Date: 20110831
  Serious: Yes (Hospitalization)
  Sender: FDA-Public Use
  Company Number: A0794485A

PATIENT
  Age: 47 Year
  Sex: Female

DRUGS (1)
  1. AVANDIA [Suspect]
     Indication: DIABETES MELLITUS
     Dosage: 8MG PER DAY
     Dates: start: 19990101, end: 20050901

REACTIONS (3)
  - MYOCARDIAL ISCHAEMIA [None]
  - ANGINA UNSTABLE [None]
  - CORONARY ARTERY DISEASE [None]
